FAERS Safety Report 8227801-6 (Version None)
Quarter: 2012Q1

REPORT INFORMATION
  Report Type: 
  Country: None (occurrence: None)
  Receive Date: 20120307
  Receipt Date: 20100414
  Transmission Date: 20120608
  Serious: Yes (Hospitalization)
  Sender: FDA-Public Use
  Company Number: PHHY2010US23774

PATIENT
  Age: 62 Year
  Sex: Female

DRUGS (2)
  1. AFINITOR [Suspect]
     Dosage: 10 MG, QD, ORAL
     Route: 048
  2. SANDOSTATIN [Concomitant]

REACTIONS (1)
  - HAEMORRHAGE [None]
